FAERS Safety Report 6288586-6 (Version None)
Quarter: 2009Q3

REPORT INFORMATION
  Report Type: 
  Country: None (occurrence: None)
  Receive Date: 20090729
  Receipt Date: 20090728
  Transmission Date: 20100115
  Serious: Yes (Other)
  Sender: FDA-Public Use
  Company Number: JP-JNJFOC-20090609137

PATIENT
  Age: 52 Year
  Sex: Female

DRUGS (1)
  1. ITRIZOLE [Suspect]
     Indication: ONYCHOMYCOSIS
     Route: 048

REACTIONS (3)
  - ANAEMIA [None]
  - GASTROINTESTINAL HAEMORRHAGE [None]
  - OEDEMA PERIPHERAL [None]
